FAERS Safety Report 5046137-8 (Version None)
Quarter: 2006Q3

REPORT INFORMATION
  Report Type: 
  Country: None (occurrence: None)
  Receive Date: 20060707
  Receipt Date: 20060707
  Transmission Date: 20061208
  Serious: No
  Sender: FDA-Public Use
  Company Number: None

PATIENT
  Age: 35 Year
  Sex: Male
  Weight: 83.9154 kg

DRUGS (2)
  1. LEVAQUIN [Suspect]
  2. CIPRO [Suspect]

REACTIONS (8)
  - ANXIETY [None]
  - ARTHRALGIA [None]
  - BODY TEMPERATURE DECREASED [None]
  - DEPRESSION [None]
  - FEELING COLD [None]
  - NERVOUS SYSTEM DISORDER [None]
  - PANIC ATTACK [None]
  - TENDON DISORDER [None]
